FAERS Safety Report 13590407 (Version 1)
Quarter: 2017Q2

REPORT INFORMATION
  Report Type: Spontaneous
  Country: US (occurrence: US)
  Receive Date: 20170529
  Receipt Date: 20170529
  Transmission Date: 20170830
  Serious: No
  Sender: FDA-Public Use
  Company Number: None

PATIENT
  Age: 27 Year
  Sex: Female
  Weight: 42.3 kg

DRUGS (9)
  1. SEROQUEL [Concomitant]
     Active Substance: QUETIAPINE FUMARATE
  2. GENERIC ZYRTEC [Concomitant]
     Active Substance: CETIRIZINE HYDROCHLORIDE
  3. VYVANSE [Suspect]
     Active Substance: LISDEXAMFETAMINE DIMESYLATE
     Indication: ATTENTION DEFICIT/HYPERACTIVITY DISORDER
     Dosage: ?          QUANTITY:30 CAPSULE(S);?
     Route: 048
     Dates: start: 20170509, end: 20170529
  4. OCELLA [Concomitant]
     Active Substance: DROSPIRENONE\ETHINYL ESTRADIOL
  5. WOMEN^S FORMULA ONE-A-DAY MULTIVITAMIN [Concomitant]
  6. BUPROPION HYDROCHLORIDE XL [Concomitant]
     Active Substance: BUPROPION HYDROCHLORIDE
  7. AZELASTINE [Concomitant]
     Active Substance: AZELASTINE
  8. VIVISCALP [Concomitant]
  9. VAYARIN [Concomitant]
     Active Substance: DOCONEXENT\ICOSAPENT\PHOSPHATIDYL SERINE

REACTIONS (6)
  - Product quality issue [None]
  - Drug effect decreased [None]
  - Loss of personal independence in daily activities [None]
  - Drug ineffective [None]
  - Product solubility abnormal [None]
  - Product physical issue [None]

NARRATIVE: CASE EVENT DATE: 20170509
